FAERS Safety Report 13358126 (Version 1)
Quarter: 2017Q1

REPORT INFORMATION
  Report Type: Spontaneous
  Country: US (occurrence: US)
  Receive Date: 20170321
  Receipt Date: 20170321
  Transmission Date: 20170429
  Serious: Yes (Disabling)
  Sender: FDA-Public Use
  Company Number: None

PATIENT
  Age: 33 Year
  Sex: Female
  Weight: 57.15 kg

DRUGS (1)
  1. CIPROFLOXACIN. [Suspect]
     Active Substance: CIPROFLOXACIN
     Indication: URINARY TRACT INFECTION
     Route: 048

REACTIONS (6)
  - Pruritus [None]
  - Gait disturbance [None]
  - Neuralgia [None]
  - Burning sensation [None]
  - Pain [None]
  - Feeling abnormal [None]

NARRATIVE: CASE EVENT DATE: 20140601
